FAERS Safety Report 9271980 (Version 3)
Quarter: 2015Q1

REPORT INFORMATION
  Report Type: Spontaneous
  Country: US (occurrence: US)
  Receive Date: 20130506
  Receipt Date: 20150320
  Transmission Date: 20150721
  Serious: Yes (Hospitalization, Other)
  Sender: FDA-Public Use
  Company Number: US-009507513-1305USA000533

PATIENT
  Age: 72 Year
  Sex: Male

DRUGS (5)
  1. GUANIDINE [Suspect]
     Active Substance: GUANIDINE
     Indication: MYASTHENIC SYNDROME
     Dosage: 2 TABLETS A DAY
     Route: 048
     Dates: start: 20130420
  2. SYNTHROID [Concomitant]
     Active Substance: LEVOTHYROXINE SODIUM
  3. GUANIDINE [Suspect]
     Active Substance: GUANIDINE
     Dosage: 125 MG, BID
     Route: 048
     Dates: end: 20150309
  4. GUANIDINE [Suspect]
     Active Substance: GUANIDINE
     Dosage: 1 DF, QD
     Route: 048
     Dates: start: 201304
  5. GUANIDINE [Suspect]
     Active Substance: GUANIDINE
     Indication: MUSCULAR WEAKNESS
     Dosage: 125 MG, TID
     Route: 048
     Dates: start: 1970

REACTIONS (13)
  - Implantable defibrillator insertion [Unknown]
  - Adverse event [Unknown]
  - Memory impairment [Not Recovered/Not Resolved]
  - Drug dose omission [Unknown]
  - Transfusion [Unknown]
  - Asthenia [Not Recovered/Not Resolved]
  - Muscular weakness [Not Recovered/Not Resolved]
  - Drug dose omission [Unknown]
  - Drug dose omission [Unknown]
  - Feeling abnormal [Unknown]
  - Asthenia [Not Recovered/Not Resolved]
  - Gait disturbance [Not Recovered/Not Resolved]
  - Drug dose omission [Unknown]

NARRATIVE: CASE EVENT DATE: 1970
